FAERS Safety Report 17197290 (Version 1)
Quarter: 2019Q4

REPORT INFORMATION
  Report Type: Spontaneous
  Country: US (occurrence: US)
  Receive Date: 20191224
  Receipt Date: 20191224
  Transmission Date: 20200122
  Serious: No
  Sender: FDA-Public Use
  Company Number: US-ASTRAZENECA-2019SF70723

PATIENT
  Age: 67 Year
  Sex: Female
  Weight: 87.1 kg

DRUGS (2)
  1. VENTOLIN [Concomitant]
     Active Substance: ALBUTEROL SULFATE
     Dosage: 25 PUFFS EVERY FOUR HOURS90.0UG UNKNOWN
     Route: 055
     Dates: start: 2018
  2. BEVESPI AEROSPHERE [Suspect]
     Active Substance: FORMOTEROL FUMARATE\GLYCOPYRROLATE
     Indication: CHRONIC OBSTRUCTIVE PULMONARY DISEASE
     Dosage: 2 PUFFS TWO TIMES A DAY
     Route: 055
     Dates: start: 2016

REACTIONS (4)
  - Wrong technique in device usage process [Not Recovered/Not Resolved]
  - Product dose omission [Not Recovered/Not Resolved]
  - Device issue [Unknown]
  - Feeling abnormal [Not Recovered/Not Resolved]

NARRATIVE: CASE EVENT DATE: 2016
